FAERS Safety Report 7637233-7 (Version None)
Quarter: 2011Q3

REPORT INFORMATION
  Report Type: 
  Country: None (occurrence: None)
  Receive Date: 20110726
  Receipt Date: 20090210
  Transmission Date: 20111222
  Serious: Yes (Death, Other)
  Sender: FDA-Public Use
  Company Number: US-BAYER-200840013NA

PATIENT
  Age: 60 Year
  Sex: Male
  Weight: 58.957 kg

DRUGS (21)
  1. TRASYLOL [Suspect]
     Indication: MITRAL VALVE REPLACEMENT
     Dosage: 25 ML, INFUSION
     Route: 042
     Dates: start: 20000308, end: 20000308
  2. TRASYLOL [Suspect]
     Dosage: 1000000 U, PRIME
     Route: 042
     Dates: start: 20000308, end: 20000308
  3. LIDOCAINE [Concomitant]
     Dosage: 100 MG, UNK
     Dates: start: 20000308, end: 20000308
  4. SPIRONOLACTONE [Concomitant]
     Dosage: 100 MG, QD
     Route: 048
  5. CLINDAMYCIN [Concomitant]
     Dosage: 500 MG, TID
     Route: 042
     Dates: start: 20000306
  6. LASIX [Concomitant]
     Dosage: 40 MG EVENING
     Route: 048
  7. TEMAZEPAM [Concomitant]
     Dosage: 15 MG, QD, EVENING
     Route: 048
  8. INSULIN [Concomitant]
  9. ANCEF [Concomitant]
     Dosage: UNK
     Dates: start: 20041110
  10. PREVACID [Concomitant]
     Dosage: 15 MG, QD
     Route: 048
  11. NIFEREX [Concomitant]
     Dosage: 150 MG, BID
     Route: 048
  12. GENTAMYCIN SULFATE [Concomitant]
     Dosage: UNK
     Dates: start: 20041110
  13. GENTAMYCIN SULFATE [Concomitant]
     Dosage: 80 MG, BID
     Route: 042
     Dates: start: 20000306
  14. LASIX [Concomitant]
     Dosage: 80 MG, UNK, MORNING
     Route: 048
  15. VANCOMYCIN [Concomitant]
     Dosage: 500 MG, QD
     Route: 042
     Dates: start: 20000306
  16. TRASYLOL [Suspect]
     Indication: AORTIC VALVE REPLACEMENT
     Dosage: 100 ML, BOLUS
     Route: 042
     Dates: start: 20000308, end: 20000308
  17. CEFTRIAXONE [Concomitant]
     Dosage: 1 GRAM EVERY 24 HRS.
     Route: 042
  18. LANSOPRAZOLE [Concomitant]
  19. PROPRANOLOL [Concomitant]
     Dosage: 10 MG, TID
     Route: 048
  20. PROTAMINE SULFATE [Concomitant]
     Dosage: UNK
     Route: 042
     Dates: start: 20000308, end: 20000308
  21. HEPARIN [Concomitant]
     Dosage: 20000 U, UNK
     Dates: start: 20000308, end: 20000308

REACTIONS (13)
  - RENAL FAILURE [None]
  - RENAL INJURY [None]
  - ANHEDONIA [None]
  - INJURY [None]
  - EMOTIONAL DISTRESS [None]
  - FEAR [None]
  - RENAL IMPAIRMENT [None]
  - UNEVALUABLE EVENT [None]
  - MULTI-ORGAN FAILURE [None]
  - DEATH [None]
  - STRESS [None]
  - ANXIETY [None]
  - PAIN [None]
